FAERS Safety Report 8255741-5 (Version None)
Quarter: 2012Q2

REPORT INFORMATION
  Report Type: 
  Country: None (occurrence: None)
  Receive Date: 20120403
  Receipt Date: 20120329
  Transmission Date: 20120825
  Serious: Yes (Hospitalization, Other)
  Sender: FDA-Public Use
  Company Number: PHEH2012US001735

PATIENT
  Sex: Female
  Weight: 63.492 kg

DRUGS (16)
  1. SYNTHROID [Concomitant]
  2. OMEPRAZOLE [Concomitant]
  3. ARICEPT [Concomitant]
     Dosage: UNK UKN, UNK
  4. BACLOFEN [Concomitant]
  5. FUROSEMIDE [Concomitant]
  6. GILENYA [Suspect]
     Indication: MULTIPLE SCLEROSIS
     Dosage: 0.5 MG, QD
     Route: 048
     Dates: start: 20120111
  7. CITALOPRAM HYDROBROMIDE [Concomitant]
  8. BONIVA [Concomitant]
     Dosage: UNK UKN, UNK
  9. TRAMADOL HCL [Concomitant]
     Dosage: UNK UKN, UNK
  10. CELEBREX [Concomitant]
  11. GILENYA [Suspect]
     Dosage: 0.5 MG, QD
  12. CALCIUM WITH VITAMIN D [Concomitant]
  13. NAMENDA [Concomitant]
  14. DONEPEZIL HCL [Concomitant]
     Dosage: UNK UKN, UNK
  15. RANITIDINE [Concomitant]
  16. CELEXA [Concomitant]
     Dosage: UNK UKN, UNK

REACTIONS (6)
  - ARTHRITIS [None]
  - ARTHRALGIA [None]
  - PULMONARY EMBOLISM [None]
  - CHEST PAIN [None]
  - NASOPHARYNGITIS [None]
  - HEADACHE [None]
